FAERS Safety Report 9857186 (Version 1)
Quarter: 2014Q1

REPORT INFORMATION
  Report Type: Spontaneous
  Country: BR (occurrence: BR)
  Receive Date: 20140130
  Receipt Date: 20140130
  Transmission Date: 20141002
  Serious: Yes (Other)
  Sender: FDA-Public Use
  Company Number: BR-LUNDBECK-DKLU1096986

PATIENT
  Sex: Male

DRUGS (5)
  1. FRISIUM [Suspect]
     Indication: EPILEPSY
     Route: 048
     Dates: start: 2004
  2. FRISIUM [Suspect]
     Route: 048
     Dates: start: 20140109
  3. CARBAMAZEPINE [Concomitant]
     Indication: EPILEPSY
     Dates: start: 2000
  4. TOPIRAMATE [Concomitant]
     Indication: EPILEPSY
     Dates: start: 2011
  5. DEPAKENE [Concomitant]
     Indication: EPILEPSY
     Dates: start: 2013

REACTIONS (2)
  - Helminthic infection [Unknown]
  - Tremor [Unknown]
